FAERS Safety Report 4862391-7 (Version None)
Quarter: 2005Q4

REPORT INFORMATION
  Report Type: 
  Country: None (occurrence: None)
  Receive Date: 20051219
  Receipt Date: 20051219
  Transmission Date: 20060501
  Serious: Yes (Hospitalization)
  Sender: FDA-Public Use
  Company Number: None

PATIENT
  Age: 45 Year
  Sex: Male

DRUGS (2)
  1. IODIXANOL [Suspect]
     Indication: SUBCLAVIAN VEIN THROMBOSIS
     Dosage: 25ML   ONCE   IV BOLUS
     Route: 040
     Dates: start: 20050829, end: 20050829
  2. IODIXANOL [Suspect]
     Indication: SUBCLAVIAN VEIN THROMBOSIS
     Dosage: 75ML   ONCE   IV BOLUS
     Route: 040
     Dates: start: 20050830, end: 20050830

REACTIONS (3)
  - POST PROCEDURAL COMPLICATION [None]
  - RENAL FAILURE [None]
  - RENAL TUBULAR NECROSIS [None]
